FAERS Safety Report 10246678 (Version 1)
Quarter: 2014Q1

REPORT INFORMATION
  Report Type: Spontaneous
  Country: US (occurrence: None)
  Receive Date: 20140306
  Receipt Date: 20140306
  Transmission Date: 20141002
  Serious: Yes (Hospitalization, Other)
  Sender: FDA-Public Use
  Company Number: 163-21880-13042646

PATIENT
  Age: 73 Year
  Sex: Male

DRUGS (1)
  1. REVLIMID (LENALIDOMIDE) (25 MILLIGRAM, CAPSULES) [Suspect]
     Indication: PLASMA CELL MYELOMA
     Route: 048
     Dates: start: 201211

REACTIONS (8)
  - Subarachnoid haemorrhage [None]
  - Fall [None]
  - Thrombocytopenia [None]
  - Syncope [None]
  - Cardiac failure [None]
  - Atrial fibrillation [None]
  - Pancytopenia [None]
  - Renal failure acute [None]
